FAERS Safety Report 20474748 (Version 1)
Quarter: 2022Q1

REPORT INFORMATION
  Report Type: Other
  Country: DE (occurrence: DE)
  Receive Date: 20220215
  Receipt Date: 20220215
  Transmission Date: 20220423
  Serious: Yes (Congenital Anomaly, Other)
  Sender: FDA-Public Use
  Company Number: DE-MACLEODS PHARMACEUTICALS US LTD-MAC2022034348

PATIENT

DRUGS (9)
  1. PANTOPRAZOLE SODIUM [Suspect]
     Active Substance: PANTOPRAZOLE SODIUM
     Indication: Product used for unknown indication
     Dosage: 40 MILLIGRAM, QD, EXPOSURE AT 1ST TRIMESTER (5.3. - 37.1. GESTATIONAL WEEK)
     Route: 064
     Dates: start: 20201102, end: 20210720
  2. BISOPROLOL [Suspect]
     Active Substance: BISOPROLOL
     Indication: Product used for unknown indication
     Dosage: 2.5 MILLIGRAM, QD, EXPOSURE AT 1ST TRIMESTER (0. - 37.1. GESTATIONAL WEEK)
     Route: 064
     Dates: start: 20201102, end: 20210720
  3. AMITRIPTYLINE [Concomitant]
     Active Substance: AMITRIPTYLINE
     Indication: Product used for unknown indication
     Dosage: 25 MILLIGRAM, QD/OR UNTIL DELIVERY, 1ST TRIMESTER (0. - 5. GESTATIONAL WEEK)
     Route: 064
     Dates: start: 20201102, end: 20210720
  4. LEVOTHYROXINE SODIUM [Concomitant]
     Active Substance: LEVOTHYROXINE SODIUM
     Indication: Product used for unknown indication
     Dosage: 50 MILLIGRAM, QD, 1ST TRIMESTER OF EXPOSURE (0. - 37.1. GESTATIONAL WEEK)
     Route: 064
     Dates: start: 20201102, end: 20210720
  5. ENOXAPARIN SODIUM [Concomitant]
     Active Substance: ENOXAPARIN SODIUM
     Indication: Product used for unknown indication
     Dosage: UNK, EXPOSURE DURING 1ST TRIMESTER (5.3. - 37.1. GESTATIONAL WEEK)
     Route: 064
     Dates: start: 20201210, end: 20210720
  6. APIXABAN [Concomitant]
     Active Substance: APIXABAN
     Indication: Product used for unknown indication
     Dosage: 10 MILLIGRAM, QD, EXPOSURE AT 1ST TRIMESTER (0. - 5.3. GESTATIONAL WEEK)
     Route: 064
     Dates: start: 20201102, end: 20201210
  7. PREGABALIN [Concomitant]
     Active Substance: PREGABALIN
     Indication: Product used for unknown indication
     Dosage: 125 MILLIGRAM, QD (50-0-75 MG/D), AT 1ST TRIMESTER (0. - 5.3. GESTATIONAL WEEK)
     Route: 064
     Dates: start: 20201102, end: 20201210
  8. ALBUTEROL [Concomitant]
     Active Substance: ALBUTEROL
     Indication: Product used for unknown indication
     Dosage: UNK UNK, PRN (IF REQUIRED, AS NECESSARY, EXPOSURE AT 1ST TRIMESTER (0. - 37.1. GESTATIONAL WEEK
     Route: 064
     Dates: start: 20201102, end: 20210720
  9. Propess vaginal insert [Concomitant]
     Indication: Product used for unknown indication
     Dosage: UNK, EXPOSURE AT THIRD TRIMESTER (37.1. - 37.1. GESTATIONAL WEEK)
     Route: 064

REACTIONS (4)
  - Small for dates baby [Unknown]
  - Hypospadias [Unknown]
  - Atrial septal defect [Unknown]
  - Foetal exposure during pregnancy [Unknown]
